FAERS Safety Report 15742297 (Version 1)
Quarter: 2018Q4

REPORT INFORMATION
  Report Type: Spontaneous
  Country: US (occurrence: US)
  Receive Date: 20181219
  Receipt Date: 20181219
  Transmission Date: 20190205
  Serious: No
  Sender: FDA-Public Use
  Company Number: US-TARO-2018TAR00116

PATIENT
  Age: 95 Year
  Sex: Male
  Weight: 88.44 kg

DRUGS (5)
  1. HYDROCORTISONE CREAM USP 2.5% [Suspect]
     Active Substance: HYDROCORTISONE
     Indication: RASH ERYTHEMATOUS
     Dosage: UNK, 2X/DAY
     Route: 061
     Dates: start: 20180103
  2. ASPIRIN. [Concomitant]
     Active Substance: ASPIRIN
     Dosage: UNK, 1X/DAY
  3. METOPROLOL. [Concomitant]
     Active Substance: METOPROLOL
  4. RAMIPRIL. [Concomitant]
     Active Substance: RAMIPRIL
  5. HYDROCORTISONE CREAM USP 2.5% [Suspect]
     Active Substance: HYDROCORTISONE
     Indication: PRECANCEROUS SKIN LESION

REACTIONS (2)
  - Drug effect incomplete [Not Recovered/Not Resolved]
  - Off label use [Not Recovered/Not Resolved]

NARRATIVE: CASE EVENT DATE: 20180103
